FAERS Safety Report 9205979 (Version 1)
Quarter: 2013Q1

REPORT INFORMATION
  Report Type: Spontaneous
  Country: US (occurrence: None)
  Receive Date: 20120709
  Receipt Date: 20120709
  Transmission Date: 20140127
  Serious: Yes (Other)
  Sender: FDA-Public Use
  Company Number: PHHY2011US42478

PATIENT
  Sex: Male
  Weight: 68.9 kg

DRUGS (3)
  1. GLEEVEC (IMATINIB) [Suspect]
     Indication: LEUKAEMIA
     Route: 048
     Dates: start: 20081008
  2. KETOROLAC (KETOROLAC) [Concomitant]
  3. METOCLOPRAMIDE (METOCLOPRAMIDE) [Concomitant]

REACTIONS (4)
  - Diarrhoea [None]
  - Headache [None]
  - Dizziness [None]
  - Muscle spasms [None]
